FAERS Safety Report 25274944 (Version 3)
Quarter: 2025Q2

REPORT INFORMATION
  Report Type: Report from Study
  Country: CA (occurrence: CA)
  Receive Date: 20250506
  Receipt Date: 20250527
  Transmission Date: 20250716
  Serious: Yes (Hospitalization, Other)
  Sender: TAKEDA
  Company Number: CA-TAKEDA-2025TUS042410

PATIENT
  Sex: Male

DRUGS (17)
  1. VEDOLIZUMAB [Suspect]
     Active Substance: VEDOLIZUMAB
     Indication: Colitis ulcerative
  2. SULFASALAZINE [Concomitant]
     Active Substance: SULFASALAZINE
     Dosage: 1000 MILLIGRAM, BID
  3. ASACOL [Concomitant]
     Active Substance: MESALAMINE
     Dosage: 800 MILLIGRAM, TID
  4. ASPIRIN [Concomitant]
     Active Substance: ASPIRIN
     Dosage: 81 MILLIGRAM, QD
  5. BISOPROLOL [Concomitant]
     Active Substance: BISOPROLOL
     Dosage: 5 MILLIGRAM, QD
  6. CANDESARTAN [Concomitant]
     Active Substance: CANDESARTAN
     Dosage: 16 MILLIGRAM, QD
  7. VITAMIN B12 [Concomitant]
     Active Substance: CYANOCOBALAMIN
  8. FEBUXOSTAT [Concomitant]
     Active Substance: FEBUXOSTAT
     Indication: Gout
     Dosage: 80 MILLIGRAM, QD
  9. POTASSIUM [Concomitant]
     Active Substance: POTASSIUM
  10. ROSUVASTATIN [Concomitant]
     Active Substance: ROSUVASTATIN
     Dosage: 10 MILLIGRAM, QD
  11. SPIRONOLACTONE [Concomitant]
     Active Substance: SPIRONOLACTONE
     Dosage: 25 MILLIGRAM, QD
  12. TOLTERODINE [Concomitant]
     Active Substance: TOLTERODINE
     Dosage: 4 MILLIGRAM, QD
  13. IMODIUM [Concomitant]
     Active Substance: LOPERAMIDE HYDROCHLORIDE
  14. TYLENOL [Concomitant]
     Active Substance: ACETAMINOPHEN
     Indication: Arthritis
  15. LASIX [Concomitant]
     Active Substance: FUROSEMIDE
  16. CRESTOR [Concomitant]
     Active Substance: ROSUVASTATIN CALCIUM
  17. PLAVIX [Concomitant]
     Active Substance: CLOPIDOGREL BISULFATE

REACTIONS (2)
  - Hip fracture [Unknown]
  - Mobility decreased [Not Recovered/Not Resolved]
